FAERS Safety Report 9892873 (Version 3)
Quarter: 2014Q2

REPORT INFORMATION
  Report Type: Spontaneous
  Country: US (occurrence: US)
  Receive Date: 20140213
  Receipt Date: 20140418
  Transmission Date: 20141212
  Serious: Yes (Death)
  Sender: FDA-Public Use
  Company Number: US-PFIZER INC-2014038232

PATIENT
  Age: 62 Year
  Sex: Male

DRUGS (4)
  1. XALKORI [Suspect]
     Indication: LUNG ADENOCARCINOMA
     Dosage: 250 MG, 2X/DAY
     Route: 048
     Dates: start: 20130715
  2. VICODIN [Concomitant]
     Indication: PAIN
     Dosage: HYDROCODONE 10MG/PARACETAMOL 650MG, EVERY 6H AS NEEDED (Q 6H PRN)
     Dates: end: 20140125
  3. MS CONTIN [Concomitant]
     Indication: PAIN
     Dosage: 30 MG, TWICE DAILY (EVERY 12H)
     Route: 048
     Dates: end: 20140125
  4. PHENERGAN [Concomitant]
     Indication: NAUSEA
     Dosage: 25 MG, EVERY 6H AS NEEDED (Q 6H PRN)

REACTIONS (1)
  - Cardiac arrest [Fatal]
